FAERS Safety Report 21614765 (Version 10)
Quarter: 2023Q1

REPORT INFORMATION
  Report Type: Report from Study
  Country: IT (occurrence: IT)
  Receive Date: 20221118
  Receipt Date: 20230120
  Transmission Date: 20230417
  Serious: Yes (Hospitalization, Other)
  Sender: FDA-Public Use
  Company Number: None

PATIENT
  Age: 78 Year
  Sex: Male

DRUGS (27)
  1. ELIQUIS [Suspect]
     Active Substance: APIXABAN
     Indication: Cerebrovascular accident prophylaxis
     Dosage: 10 MG, DAILY
     Route: 065
  2. NORVASC [Suspect]
     Active Substance: AMLODIPINE BESYLATE
     Dosage: 5 MG, 1X/DAY
     Route: 065
  3. NORVASC [Suspect]
     Active Substance: AMLODIPINE BESYLATE
     Dosage: 3 MG, 1X/DAY
     Route: 065
  4. CARDURA [Suspect]
     Active Substance: DOXAZOSIN MESYLATE
     Dosage: 2 MG, DAILY
     Route: 065
  5. CARDURA [Suspect]
     Active Substance: DOXAZOSIN MESYLATE
     Dosage: 3 MG
     Route: 065
  6. HALCION [Suspect]
     Active Substance: TRIAZOLAM
     Dosage: 0.25 MILLIGRAM, QD
     Route: 065
  7. HALCION [Suspect]
     Active Substance: TRIAZOLAM
     Dosage: 3 MG
     Route: 065
  8. LASIX [Suspect]
     Active Substance: FUROSEMIDE
     Dosage: 4DF, QD
     Route: 065
  9. LASIX [Suspect]
     Active Substance: FUROSEMIDE
     Dosage: 32 DF
     Route: 065
  10. RAMIPRIL [Suspect]
     Active Substance: RAMIPRIL
     Dosage: 10MG, QD
     Route: 065
  11. RAMIPRIL [Suspect]
     Active Substance: RAMIPRIL
     Dosage: 3 MG
     Route: 065
  12. METOPROLOL [Suspect]
     Active Substance: METOPROLOL
     Indication: Cerebrovascular accident
     Dosage: 150 MG, 1X/DAY
     Route: 065
  13. METOPROLOL [Suspect]
     Active Substance: METOPROLOL
     Dosage: 3 MG, 1X/DAY
  14. CANRENOIC ACID [Concomitant]
     Active Substance: CANRENOIC ACID
     Dosage: 50 MG, 1X/DAY
  15. CANRENOIC ACID [Concomitant]
     Active Substance: CANRENOIC ACID
     Dosage: 3 MG, QD
     Route: 065
  16. ATORVASTATIN [Concomitant]
     Active Substance: ATORVASTATIN
     Dosage: 40 MG, 1X/DAY
  17. ATORVASTATIN [Concomitant]
     Active Substance: ATORVASTATIN
     Dosage: 3 MG, QD
     Route: 065
  18. CANRENOATE POTASSIUM [Concomitant]
     Active Substance: CANRENOATE POTASSIUM
     Dosage: 3 MG, QD
  19. CANRENOATE POTASSIUM [Concomitant]
     Active Substance: CANRENOATE POTASSIUM
     Dosage: 50MG, QD
  20. CANRENOATE POTASSIUM [Concomitant]
     Active Substance: CANRENOATE POTASSIUM
     Dosage: 3 MG
  21. CANRENOATE POTASSIUM [Concomitant]
     Active Substance: CANRENOATE POTASSIUM
     Dosage: 3 MG
  22. CANRENOATE POTASSIUM [Concomitant]
     Active Substance: CANRENOATE POTASSIUM
     Dosage: 3 MG, QD
  23. CANRENOATE POTASSIUM [Concomitant]
     Active Substance: CANRENOATE POTASSIUM
     Dosage: 3 MG, QD
  24. CANRENOATE POTASSIUM [Concomitant]
     Active Substance: CANRENOATE POTASSIUM
     Dosage: 3 MG, QD
  25. CANRENOATE POTASSIUM [Concomitant]
     Active Substance: CANRENOATE POTASSIUM
     Dosage: 3 MG, QD
  26. CANRENOATE POTASSIUM [Concomitant]
     Active Substance: CANRENOATE POTASSIUM
     Dosage: 3 MG, QD
  27. CANRENOATE POTASSIUM [Concomitant]
     Active Substance: CANRENOATE POTASSIUM
     Dosage: 3 MG, QD

REACTIONS (2)
  - Orthostatic hypotension [Not Recovered/Not Resolved]
  - Loss of consciousness [Not Recovered/Not Resolved]

NARRATIVE: CASE EVENT DATE: 20220918
